FAERS Safety Report 4843411-2 (Version None)
Quarter: 2005Q4

REPORT INFORMATION
  Report Type: 
  Country: None (occurrence: None)
  Receive Date: 20051027
  Receipt Date: 20041026
  Transmission Date: 20060501
  Serious: Yes (Other)
  Sender: FDA-Public Use
  Company Number: HQWYE134727OCT04

PATIENT
  Age: 62 Year
  Sex: Female
  Weight: 88.53 kg

DRUGS (5)
  1. PREMARIN [Suspect]
     Indication: MENOPAUSAL SYMPTOMS
     Dosage: 0.625MG, ORAL
     Route: 048
     Dates: start: 19940101, end: 20020101
  2. MEDROXYPROGESTERONE [Suspect]
     Indication: MENOPAUSAL SYMPTOMS
  3. ZESTRIL [Concomitant]
  4. INSULIN [Concomitant]
  5. GLUCOPHAGE [Concomitant]

REACTIONS (1)
  - BREAST CANCER [None]
